FAERS Safety Report 9376078 (Version 1)
Quarter: 2013Q2

REPORT INFORMATION
  Report Type: Spontaneous
  Country: US (occurrence: US)
  Receive Date: 20130630
  Receipt Date: 20130630
  Transmission Date: 20140414
  Serious: No
  Sender: FDA-Public Use
  Company Number: US-009507513-1306USA010819

PATIENT
  Sex: Female

DRUGS (3)
  1. VICTRELIS [Suspect]
     Indication: HEPATITIS C
     Dosage: 800 MG, TID
     Route: 048
     Dates: start: 20130307, end: 2013
  2. RIBAPAK [Suspect]
     Indication: HEPATITIS C
     Dosage: UNK
  3. PEGASYS [Suspect]
     Indication: HEPATITIS C
     Dosage: UNK

REACTIONS (1)
  - Viral load increased [Unknown]
